FAERS Safety Report 6888715-7 (Version None)
Quarter: 2010Q3

REPORT INFORMATION
  Report Type: 
  Country: None (occurrence: None)
  Receive Date: 20100730
  Receipt Date: 20100722
  Transmission Date: 20110219
  Serious: Yes (Hospitalization)
  Sender: FDA-Public Use
  Company Number: DE-B.I. PHARMACEUTICALS,INC./RIDGEFIELD-2010-DE-03927DE

PATIENT
  Age: 57 Year
  Sex: Male

DRUGS (13)
  1. PRAMIPEXOLE DIHYDROCHLORIDE [Suspect]
     Indication: RESTLESS LEGS SYNDROME
     Route: 048
     Dates: end: 20030101
  2. CABASERIL [Suspect]
     Indication: RESTLESS LEGS SYNDROME
     Dosage: 1 ANZ
     Route: 048
     Dates: start: 20030101
  3. ASPIRIN [Concomitant]
  4. SIMVASTATIN [Concomitant]
  5. TOREM [Concomitant]
  6. ALLOPURINOL [Concomitant]
  7. PANTOZOL [Concomitant]
  8. FERRO SANOL [Concomitant]
  9. DELIX PLUS [Concomitant]
  10. MADOPAR [Concomitant]
  11. NOCTAMID [Concomitant]
  12. PRAVASTATIN SODIUM [Concomitant]
  13. MAGNESIUM VERLA DRAGEES [Concomitant]

REACTIONS (12)
  - AORTIC VALVE DISEASE [None]
  - CONDITION AGGRAVATED [None]
  - DEPRESSION [None]
  - DYSPNOEA [None]
  - FLUID RETENTION [None]
  - IMPULSE-CONTROL DISORDER [None]
  - MARITAL PROBLEM [None]
  - OFF LABEL USE [None]
  - PATHOLOGICAL GAMBLING [None]
  - SLEEP DISORDER [None]
  - SOMNOLENCE [None]
  - SUICIDE ATTEMPT [None]
